FAERS Safety Report 8546631-9 (Version None)
Quarter: 2012Q3

REPORT INFORMATION
  Report Type: 
  Country: None (occurrence: None)
  Receive Date: 20120727
  Receipt Date: 20120103
  Transmission Date: 20120928
  Serious: No
  Sender: FDA-Public Use
  Company Number: US-ASTRAZENECA-2012SE00610

PATIENT
  Age: 61 Year
  Sex: Female

DRUGS (1)
  1. SEROQUEL [Suspect]
     Route: 048

REACTIONS (3)
  - FALL [None]
  - INTERVERTEBRAL DISC DISPLACEMENT [None]
  - MUSCULOSKELETAL DISCOMFORT [None]
